FAERS Safety Report 6968811-6 (Version None)
Quarter: 2010Q3

REPORT INFORMATION
  Report Type: 
  Country: None (occurrence: None)
  Receive Date: 20100902
  Receipt Date: 20100826
  Transmission Date: 20110219
  Serious: Yes (Other)
  Sender: FDA-Public Use
  Company Number: 1000015959

PATIENT
  Age: 55 Year
  Sex: Female

DRUGS (1)
  1. SAVELLA [Suspect]

REACTIONS (4)
  - AMNESIA [None]
  - FLUSHING [None]
  - HYPERHIDROSIS [None]
  - SOMNOLENCE [None]
